FAERS Safety Report 21622418 (Version 1)
Quarter: 2022Q4

REPORT INFORMATION
  Report Type: Report from Study
  Country: CH (occurrence: CH)
  Receive Date: 20221121
  Receipt Date: 20221121
  Transmission Date: 20230113
  Serious: Yes (Hospitalization, Other)
  Sender: FDA-Public Use
  Company Number: CH-002147023-NVSC2022CH258804

PATIENT
  Age: 24 Year
  Sex: Male
  Weight: 94 kg

DRUGS (15)
  1. NELARABINE [Suspect]
     Active Substance: NELARABINE
     Indication: Acute lymphocytic leukaemia
     Dosage: NO TREATMENT
     Route: 065
  2. NELARABINE [Suspect]
     Active Substance: NELARABINE
     Dosage: 3000 MG, CYCLE 2 D1, 3, 5
     Route: 042
     Dates: start: 20190917, end: 20190921
  3. PREDNISONE [Suspect]
     Active Substance: PREDNISONE
     Indication: Acute lymphocytic leukaemia
     Dosage: NO TREATMENT
     Route: 065
  4. PREDNISONE [Suspect]
     Active Substance: PREDNISONE
     Dosage: 80 MG, CYCLE 2 D1-7
     Route: 048
     Dates: start: 20190917, end: 20190923
  5. PREDNISONE [Suspect]
     Active Substance: PREDNISONE
     Dosage: 75 MG, CYCLE 3 D1-7
     Route: 048
     Dates: start: 20191015, end: 20191021
  6. MERCAPTOPURINE [Suspect]
     Active Substance: MERCAPTOPURINE
     Indication: Acute lymphocytic leukaemia
     Dosage: NO TREATMENT
     Route: 065
  7. MERCAPTOPURINE [Suspect]
     Active Substance: MERCAPTOPURINE
     Dosage: 125 MG, CYCLE 2 D1-28
     Route: 048
     Dates: start: 20190820, end: 20190917
  8. MERCAPTOPURINE [Suspect]
     Active Substance: MERCAPTOPURINE
     Dosage: 22.5 MG, CYCLE 3 D1-28
     Route: 048
     Dates: start: 20191015, end: 20191108
  9. MERCAPTOPURINE [Suspect]
     Active Substance: MERCAPTOPURINE
     Dosage: UNK
     Route: 048
     Dates: start: 20191119
  10. METHOTREXATE [Suspect]
     Active Substance: METHOTREXATE
     Indication: Acute lymphocytic leukaemia
     Dosage: NO TREATMENT
     Route: 065
  11. METHOTREXATE [Suspect]
     Active Substance: METHOTREXATE
     Dosage: 50 MG, CYCLE 2 D1, 8, 15, 22
     Route: 048
     Dates: start: 20190820, end: 20190917
  12. METHOTREXATE [Suspect]
     Active Substance: METHOTREXATE
     Dosage: 50 MG, CYCLE 3 D1, 8, 15, 22
     Route: 048
     Dates: start: 20191015, end: 20191108
  13. BACTRIM [Concomitant]
     Active Substance: SULFAMETHOXAZOLE\TRIMETHOPRIM
     Indication: Prophylaxis
     Dosage: 3XWEEKLY
     Route: 048
     Dates: start: 20181119
  14. VALTREX [Concomitant]
     Active Substance: VALACYCLOVIR HYDROCHLORIDE
     Indication: Prophylaxis
     Dosage: 1000 MG
     Route: 048
     Dates: start: 20181119
  15. LAMIVUDINE [Concomitant]
     Active Substance: LAMIVUDINE
     Indication: Prophylaxis
     Dosage: 100 MG
     Route: 048
     Dates: start: 20181122

REACTIONS (6)
  - Pancreatitis [Recovered/Resolved]
  - Cytomegalovirus infection reactivation [Recovered/Resolved]
  - Cytomegalovirus infection reactivation [Recovered/Resolved]
  - Febrile neutropenia [Recovered/Resolved]
  - Febrile neutropenia [Recovered/Resolved]
  - Febrile neutropenia [Recovered/Resolved]

NARRATIVE: CASE EVENT DATE: 20190513
